FAERS Safety Report 19189679 (Version 2)
Quarter: 2021Q2

REPORT INFORMATION
  Report Type: Spontaneous
  Country: CN (occurrence: CN)
  Receive Date: 20210428
  Receipt Date: 20210504
  Transmission Date: 20210717
  Serious: Yes (Hospitalization)
  Sender: FDA-Public Use
  Company Number: CN-PFIZER INC-2021426473

PATIENT
  Age: 69 Year
  Sex: Female
  Weight: 65 kg

DRUGS (4)
  1. AMLODIPINE BESILATE [Concomitant]
     Active Substance: AMLODIPINE BESYLATE
     Indication: HYPERTENSION
     Dosage: 5 MG, 1X/DAY
     Route: 048
     Dates: start: 20210326, end: 20210331
  2. YIN XING YE DI WAN [Concomitant]
     Indication: LACUNAR INFARCTION
     Dosage: 5 DF, 3X/DAY
     Route: 048
     Dates: start: 20060301, end: 20210408
  3. AMLODIPINE BESILATE [Suspect]
     Active Substance: AMLODIPINE BESYLATE
     Indication: HYPERTENSION
     Dosage: 5 MG, 1X/DAY
     Route: 048
     Dates: start: 20060401, end: 20210331
  4. METOPROLOL TARTRATE. [Concomitant]
     Active Substance: METOPROLOL TARTRATE
     Indication: HYPERTENSION
     Dosage: 12.5 MG, 3X/DAY
     Route: 048
     Dates: start: 20060301, end: 20210408

REACTIONS (7)
  - Pain in extremity [Recovering/Resolving]
  - Feeling hot [Unknown]
  - Night sweats [Unknown]
  - Asthenia [Unknown]
  - Hypertension [Unknown]
  - Oedema peripheral [Recovering/Resolving]
  - Hypoaesthesia [Recovering/Resolving]

NARRATIVE: CASE EVENT DATE: 202010
